FAERS Safety Report 6336615-3 (Version None)
Quarter: 2009Q3

REPORT INFORMATION
  Report Type: 
  Country: None (occurrence: None)
  Receive Date: 20090831
  Receipt Date: 20090831
  Transmission Date: 20100115
  Serious: Yes (Hospitalization)
  Sender: FDA-Public Use
  Company Number: None

PATIENT
  Age: 71 Year
  Sex: Male
  Weight: 85 kg

DRUGS (1)
  1. IOPROMIDE [Suspect]
     Indication: ANGIOGRAM
     Dosage: 170 ML ONCE IV
     Route: 042
     Dates: start: 20090806, end: 20090806

REACTIONS (2)
  - HYPERGLYCAEMIA [None]
  - HYPOTENSION [None]
